FAERS Safety Report 9297963 (Version 1)
Quarter: 2013Q2

REPORT INFORMATION
  Report Type: Spontaneous
  Country: DE (occurrence: DE)
  Receive Date: 20130520
  Receipt Date: 20130520
  Transmission Date: 20140414
  Serious: Yes (Hospitalization)
  Sender: FDA-Public Use
  Company Number: DE-PFIZER INC-2013150319

PATIENT
  Age: 61 Year
  Sex: Male

DRUGS (7)
  1. TAZOBAC [Suspect]
     Indication: EMPYEMA
     Dosage: UNK
     Route: 042
     Dates: start: 20130111, end: 20130113
  2. CEFUROXIME [Suspect]
     Dosage: UNK
     Route: 042
     Dates: start: 20130113, end: 20130114
  3. CLINDAMYCIN PHOSPHATE [Suspect]
     Dosage: UNK
     Route: 042
     Dates: start: 20130113
  4. CIPROBAY [Suspect]
     Dosage: UNK
     Route: 048
     Dates: start: 20030111, end: 20030112
  5. BELOC ZOK [Suspect]
     Indication: HYPERTENSION
     Route: 048
  6. TAUROLIN [Suspect]
     Indication: WOUND TREATMENT
  7. CODIOVAN [Suspect]
     Indication: HYPERTENSION
     Route: 048

REACTIONS (1)
  - Toxic epidermal necrolysis [Recovering/Resolving]
